FAERS Safety Report 7832016-7 (Version None)
Quarter: 2011Q4

REPORT INFORMATION
  Report Type: 
  Country: None (occurrence: None)
  Receive Date: 20111021
  Receipt Date: 20111017
  Transmission Date: 20120403
  Serious: Yes (Death)
  Sender: FDA-Public Use
  Company Number: US-ASTRAZENECA-2011SE58337

PATIENT
  Age: 15603 Day
  Sex: Female

DRUGS (5)
  1. SEROQUEL [Suspect]
     Indication: BIPOLAR DISORDER
     Route: 048
  2. BUSPAR [Concomitant]
     Route: 048
  3. PAXIL [Concomitant]
     Route: 048
  4. BUSPAR [Concomitant]
     Route: 048
  5. SEROQUEL [Suspect]
     Indication: ANXIETY
     Route: 048

REACTIONS (5)
  - OFF LABEL USE [None]
  - OVERDOSE [None]
  - POST-TRAUMATIC STRESS DISORDER [None]
  - SUBSTANCE ABUSE [None]
  - GENERALISED ANXIETY DISORDER [None]
